FAERS Safety Report 9768302 (Version 1)
Quarter: 2013Q4

REPORT INFORMATION
  Report Type: Spontaneous
  Country: FR (occurrence: FR)
  Receive Date: 20131217
  Receipt Date: 20131217
  Transmission Date: 20140711
  Serious: Yes (Hospitalization)
  Sender: FDA-Public Use
  Company Number: FR-TAKEDA-2013TUS003173

PATIENT
  Sex: 0

DRUGS (10)
  1. COLCHICINE [Suspect]
     Indication: FAMILIAL MEDITERRANEAN FEVER
     Dosage: 1 TO 2 MG TABLET QD
  2. COLCHICINE [Suspect]
     Dosage: 2 MG TABLET, QD
  3. SULFASALAZINE [Concomitant]
     Indication: FAMILIAL MEDITERRANEAN FEVER
     Dosage: 2 G, BID
  4. ETANERCEPT [Concomitant]
     Indication: FAMILIAL MEDITERRANEAN FEVER
     Dosage: 50 MG EVERY OTHER WEEK
     Dates: start: 200706
  5. ANAKINRA [Concomitant]
     Indication: FAMILIAL MEDITERRANEAN FEVER
     Dosage: 100 MG, QD
     Route: 058
     Dates: start: 201111
  6. ADALIMUMAB [Concomitant]
     Indication: FAMILIAL MEDITERRANEAN FEVER
     Dosage: 40 MG EVERY OTHER WEEK
  7. PREDNISONE                         /00044702/ [Concomitant]
     Indication: ARTHRALGIA
  8. PREDNISONE                         /00044702/ [Concomitant]
     Indication: BACK PAIN
  9. NSAID^S [Concomitant]
     Indication: ARTHRALGIA
  10. NSAID^S [Concomitant]
     Indication: BACK PAIN

REACTIONS (2)
  - Condition aggravated [Recovered/Resolved]
  - Drug ineffective [Not Recovered/Not Resolved]
